FAERS Safety Report 14626168 (Version 4)
Quarter: 2018Q2

REPORT INFORMATION
  Report Type: Other
  Country: CA (occurrence: CA)
  Receive Date: 20180312
  Receipt Date: 20180422
  Transmission Date: 20180711
  Serious: Yes (Life-Threatening, Other)
  Sender: FDA-Public Use
  Company Number: CA-APOTEX-2018AP007437

PATIENT
  Age: 43 Year
  Sex: Male
  Weight: 73 kg

DRUGS (1)
  1. CARBAMAZEPINE. [Suspect]
     Active Substance: CARBAMAZEPINE
     Indication: SEIZURE
     Dosage: UNK
     Route: 065

REACTIONS (3)
  - Product substitution issue [Recovered/Resolved]
  - Seizure [Recovered/Resolved]
  - Drug ineffective [Recovered/Resolved]
